FAERS Safety Report 9538864 (Version 1)
Quarter: 2013Q2

REPORT INFORMATION
  Report Type: Spontaneous
  Country: US (occurrence: None)
  Receive Date: 20130517
  Receipt Date: 20130517
  Transmission Date: 20140414
  Serious: Yes (Hospitalization)
  Sender: FDA-Public Use
  Company Number: 2012PL000175

PATIENT
  Age: 31 Year
  Sex: Female
  Weight: 86.18 kg

DRUGS (4)
  1. IMURAN (AZATHIOPRINE) [Suspect]
     Indication: CROHN^S DISEASE
     Dates: start: 2011, end: 201202
  2. HUMIRA [Suspect]
     Indication: CROHN^S DISEASE
     Dosage: 40 MG; QOW; INJ
     Dates: start: 20111123, end: 20120910
  3. ASACOL [Concomitant]
  4. PREDNISONE [Concomitant]

REACTIONS (9)
  - Pancreatitis [None]
  - Abdominal pain [None]
  - Gastrointestinal inflammation [None]
  - Diarrhoea [None]
  - Dehydration [None]
  - Proctitis [None]
  - Haematochezia [None]
  - Clostridial infection [None]
  - Drug ineffective [None]
